FAERS Safety Report 5069162-X (Version None)
Quarter: 2006Q3

REPORT INFORMATION
  Report Type: 
  Country: None (occurrence: None)
  Receive Date: 20060731
  Receipt Date: 20060718
  Transmission Date: 20061208
  Serious: Yes (Death)
  Sender: FDA-Public Use
  Company Number: 060721-0000699

PATIENT

DRUGS (9)
  1. ELSPAR [Suspect]
     Indication: ACUTE LYMPHOCYTIC LEUKAEMIA
     Dosage: SEE IMAGE
     Route: 030
  2. DEXAMETHASONE [Suspect]
     Indication: ACUTE LYMPHOCYTIC LEUKAEMIA
     Dosage: SEE IMAGE
     Route: 048
  3. VINCRISTINE [Suspect]
     Indication: ACUTE LYMPHOCYTIC LEUKAEMIA
     Dosage: 1.5 MG/M2 WEEKS 1, 2, 3, 4, 23, 24, 25, 26, 51, 52, 53; QW; IV
     Route: 042
  4. CYTARABINE [Suspect]
     Indication: ACUTE LYMPHOCYTIC LEUKAEMIA
     Dosage: 3 G/M2 EVERY 12 HOURS WEEKS 5, 8, 27, 33, 39, 45; X4; IV
     Route: 042
  5. METHOTREXATE [Suspect]
     Indication: ACUTE LYMPHOCYTIC LEUKAEMIA
     Dosage: 1 G/M2 WEEKS 11, 14, 17, 20, 31, 37, 43, 49; OVER 24 HOURS; IV
     Route: 042
  6. MERCAPTOPURINE [Suspect]
     Indication: ACUTE LYMPHOCYTIC LEUKAEMIA
     Dosage: 1 G/M2 WEEKS 11, 14, 17, 20, 31, 37, 43, 49; OVER 8 HOURS; IV
     Route: 042
  7. ETOPOSIDE [Suspect]
     Indication: ACUTE LYMPHOCYTIC LEUKAEMIA
     Dosage: 300 MG/M2 WEEKS 12, 15, 18, 21, 32, 38, 44, 50; IV
     Route: 042
  8. CYCLOPHOSPHAMIDE [Suspect]
     Indication: ACUTE LYMPHOCYTIC LEUKAEMIA
     Dosage: 500 MG/M2 WEEKS 12, 15, 18, 21, 32, 38, 44, 50; IV
     Route: 042
  9. DAUNORUBICIN HCL [Suspect]
     Indication: ACUTE LYMPHOCYTIC LEUKAEMIA
     Dosage: 25 MG/M2 WEEKS 1, 2, 3, 23, 24, 25; IV
     Route: 042

REACTIONS (3)
  - CYTOMEGALOVIRUS INFECTION [None]
  - PNEUMONITIS [None]
  - SEPSIS [None]
